FAERS Safety Report 7796666-9 (Version None)
Quarter: 2011Q4

REPORT INFORMATION
  Report Type: 
  Country: None (occurrence: None)
  Receive Date: 20111005
  Receipt Date: 20110923
  Transmission Date: 20120403
  Serious: Yes (Hospitalization, Other)
  Sender: FDA-Public Use
  Company Number: US-BAYER-201037193NA

PATIENT
  Age: 31 Year
  Sex: Female
  Weight: 62.132 kg

DRUGS (6)
  1. COUMADIN [Concomitant]
  2. YASMIN [Suspect]
     Dosage: UNK
     Dates: start: 20081201, end: 20090121
  3. LORAZEPAM [Concomitant]
     Dosage: 2 MG, QD
     Route: 048
  4. LOVENOX [Concomitant]
  5. CITALOPRAM HYDROBROMIDE [Concomitant]
     Dosage: 1 MG, QD
     Route: 048
     Dates: start: 20081209
  6. CELEXA [Concomitant]

REACTIONS (2)
  - PULMONARY EMBOLISM [None]
  - INJURY [None]
